FAERS Safety Report 6900783-2 (Version None)
Quarter: 2010Q3

REPORT INFORMATION
  Report Type: 
  Country: None (occurrence: None)
  Receive Date: 20100803
  Receipt Date: 20100617
  Transmission Date: 20110219
  Serious: Yes (Other)
  Sender: FDA-Public Use
  Company Number: US-SANOFI-AVENTIS-2010SA036827

PATIENT
  Age: 72 Year
  Sex: Female
  Weight: 65.3 kg

DRUGS (6)
  1. PLAVIX [Suspect]
     Indication: TRANSIENT ISCHAEMIC ATTACK
     Route: 048
     Dates: start: 20010401
  2. PLAVIX [Suspect]
     Route: 048
     Dates: start: 20010401
  3. TOPROL-XL [Concomitant]
     Indication: BLOOD PRESSURE
     Dates: start: 19890101
  4. ASPIRIN [Concomitant]
  5. ANTIHYPERTENSIVES [Concomitant]
     Indication: BLOOD PRESSURE
  6. LOVASTATIN [Concomitant]

REACTIONS (7)
  - ANXIETY [None]
  - CEREBROVASCULAR ACCIDENT [None]
  - COGNITIVE DISORDER [None]
  - CONTUSION [None]
  - GASTROINTESTINAL DISORDER [None]
  - NASOPHARYNGITIS [None]
  - PNEUMONIA [None]
